FAERS Safety Report 4297429-1 (Version None)
Quarter: 2004Q1

REPORT INFORMATION
  Report Type: 
  Country: None (occurrence: None)
  Receive Date: 20040218
  Receipt Date: 20020211
  Transmission Date: 20041129
  Serious: Yes (Hospitalization)
  Sender: FDA-Public Use
  Company Number: FR-ROCHE-306801

PATIENT
  Age: 46 Year
  Sex: Male
  Weight: 61 kg

DRUGS (38)
  1. ENFUVIRTIDE [Suspect]
     Indication: HIV INFECTION
     Route: 058
     Dates: start: 20010404, end: 20020610
  2. ENFUVIRTIDE [Suspect]
     Route: 058
     Dates: start: 20020612, end: 20031124
  3. RITONAVIR [Suspect]
     Indication: DRUG USE FOR UNKNOWN INDICATION
     Route: 065
     Dates: start: 20020612
  4. RITONAVIR [Suspect]
     Route: 065
     Dates: start: 20010404, end: 20020610
  5. RITONAVIR [Suspect]
     Route: 065
     Dates: start: 19991115, end: 20000221
  6. LOPINAVIR [Suspect]
     Indication: DRUG USE FOR UNKNOWN INDICATION
     Route: 065
     Dates: start: 20020612
  7. LOPINAVIR [Suspect]
     Route: 065
     Dates: start: 20010404, end: 20020610
  8. LOPINAVIR [Suspect]
     Route: 065
     Dates: start: 20000222
  9. VIREAD [Suspect]
     Indication: DRUG USE FOR UNKNOWN INDICATION
     Route: 065
     Dates: start: 20020410, end: 20021020
  10. DIDANOSINE [Concomitant]
     Dates: start: 19950908, end: 20020724
  11. STAVUDINE [Concomitant]
     Dates: start: 19960202, end: 20020410
  12. SAQUINAVIR [Concomitant]
     Dates: start: 19980407, end: 20021212
  13. ZIDOVUDINE [Concomitant]
     Dates: start: 19940825
  14. BACTRIM [Concomitant]
     Dates: start: 19950909
  15. ZELITREX [Concomitant]
  16. TOPALGIC [Concomitant]
  17. OMEPRAZOLE [Concomitant]
     Dates: start: 19990829
  18. GRISEFULINE [Concomitant]
  19. DI ANTALVIC [Concomitant]
     Dates: start: 19960830
  20. CLONAZEPAM [Concomitant]
     Dates: start: 20020612, end: 20021029
  21. FLUCONAZOLE [Concomitant]
  22. LAROXYL [Concomitant]
     Dates: start: 20020620
  23. MS CONTIN [Concomitant]
  24. KALETRA [Concomitant]
     Dosage: DOSE REPORTED AS 3/J
     Dates: start: 20020307
  25. COMBIVIR [Concomitant]
     Dosage: TDD REPORTED AS 2/J.
     Dates: start: 20020724
  26. INVIRASE [Concomitant]
     Dates: start: 20020410
  27. NOCTRAN [Concomitant]
     Dates: start: 19951205
  28. RIVOTRIL [Concomitant]
  29. MORPHINE [Concomitant]
     Dates: start: 19980223
  30. VALACYCLOVIR HCL [Concomitant]
     Dates: start: 19990131
  31. CALCIUM FOLINATE [Concomitant]
     Dates: start: 19950909
  32. LOPERAMIDE HCL [Concomitant]
     Dates: start: 19980223
  33. DIOSMECTITE [Concomitant]
     Dates: start: 20000207
  34. MYOLASTAN [Concomitant]
     Dates: start: 19951205
  35. PREDNISONE [Concomitant]
  36. DEXCHLORPHENIRAMINE MALEATE [Concomitant]
  37. ZYRTEC [Concomitant]
     Dates: start: 20010418
  38. AMITRIPTYLINE [Concomitant]
     Dates: start: 20020620, end: 20021021

REACTIONS (8)
  - DYSPNOEA EXERTIONAL [None]
  - GAMMOPATHY [None]
  - GASTRITIS [None]
  - HEPATOMEGALY [None]
  - OEDEMA PERIPHERAL [None]
  - PAPILLOMA [None]
  - POLYURIA [None]
  - RENAL TUBULAR NECROSIS [None]
